FAERS Safety Report 6210316-4 (Version None)
Quarter: 2009Q2

REPORT INFORMATION
  Report Type: 
  Country: None (occurrence: None)
  Receive Date: 20090527
  Receipt Date: 20090514
  Transmission Date: 20091009
  Serious: Yes (Life-Threatening)
  Sender: FDA-Public Use
  Company Number: 2009005293

PATIENT
  Age: 47 Year
  Sex: Female
  Weight: 90.7194 kg

DRUGS (7)
  1. AMRIX [Suspect]
     Indication: RHEUMATOID ARTHRITIS
     Dosage: 15 MG (15 MG, 1 IN 1 D), ORAL
     Route: 048
     Dates: start: 20090429, end: 20090429
  2. ATENOLOL [Concomitant]
  3. HYDROCHLOROTHIAZIDE [Concomitant]
  4. AMITRIPTYLINE (AMIITRIOTYLINE) (25 MILLIGRAM) [Concomitant]
  5. LORCET-HD [Concomitant]
  6. SOMA [Concomitant]
  7. XANAX [Concomitant]

REACTIONS (7)
  - DRUG TOXICITY [None]
  - DYSPNOEA [None]
  - ENURESIS [None]
  - MEMORY IMPAIRMENT [None]
  - REFUSAL OF TREATMENT BY PATIENT [None]
  - SOMNOLENCE [None]
  - VOMITING [None]
